FAERS Safety Report 18633684 (Version 1)
Quarter: 2020Q4

REPORT INFORMATION
  Report Type: Spontaneous
  Country: CN (occurrence: CN)
  Receive Date: 20201218
  Receipt Date: 20201218
  Transmission Date: 20210114
  Serious: Yes (Other)
  Sender: FDA-Public Use
  Company Number: CN-PFIZER INC-2020498949

PATIENT
  Age: 5 Year
  Sex: Female

DRUGS (2)
  1. AZITHROMYCIN ANHYDROUS. [Suspect]
     Active Substance: AZITHROMYCIN ANHYDROUS
     Indication: PNEUMONIA MYCOPLASMAL
  2. AZITHROMYCIN ANHYDROUS. [Suspect]
     Active Substance: AZITHROMYCIN ANHYDROUS
     Indication: ANTI-INFECTIVE THERAPY
     Dosage: 0.18 G, 1X/DAY
     Route: 041
     Dates: start: 20201113, end: 20201118

REACTIONS (5)
  - Abdominal pain [Recovered/Resolved]
  - Product use issue [Unknown]
  - Off label use [Unknown]
  - Effusion [Unknown]
  - Gastrointestinal wall thickening [Unknown]

NARRATIVE: CASE EVENT DATE: 20201113
